FAERS Safety Report 24894695 (Version 1)
Quarter: 2025Q1

REPORT INFORMATION
  Report Type: Spontaneous
  Country: US (occurrence: US)
  Receive Date: 20250128
  Receipt Date: 20250128
  Transmission Date: 20250409
  Serious: No
  Sender: ROCHE
  Company Number: US-ROCHE-10000188611

PATIENT
  Sex: Female

DRUGS (20)
  1. XOLAIR [Suspect]
     Active Substance: OMALIZUMAB
     Indication: Asthma
     Route: 058
  2. XOLAIR [Suspect]
     Active Substance: OMALIZUMAB
  3. ALBUTEROL [Concomitant]
     Active Substance: ALBUTEROL
  4. ATORVASTATIN [Concomitant]
     Active Substance: ATORVASTATIN
  5. BELBUCA [Concomitant]
     Active Substance: BUPRENORPHINE HYDROCHLORIDE
  6. BUSPIRONE [Concomitant]
     Active Substance: BUSPIRONE HYDROCHLORIDE
  7. CELEBREX [Concomitant]
     Active Substance: CELECOXIB
  8. DICLOFENAC [Concomitant]
     Active Substance: DICLOFENAC
  9. ESTRADIOL [Concomitant]
     Active Substance: ESTRADIOL
  10. FAMOTIDINE [Concomitant]
     Active Substance: FAMOTIDINE
  11. GABAPENTIN [Concomitant]
     Active Substance: GABAPENTIN
  12. GEMTESA [Concomitant]
     Active Substance: VIBEGRON
  13. LAMOTRIGINE [Concomitant]
     Active Substance: LAMOTRIGINE
  14. MESALAMINE [Concomitant]
     Active Substance: MESALAMINE
  15. OLANZAPINE [Concomitant]
     Active Substance: OLANZAPINE
  16. TOPIRAMATE [Concomitant]
     Active Substance: TOPIRAMATE
  17. TRELEGY ELLIPTA [Concomitant]
     Active Substance: FLUTICASONE FUROATE\UMECLIDINIUM BROMIDE\VILANTEROL TRIFENATATE
  18. TRIAMTERENE [Concomitant]
     Active Substance: TRIAMTERENE
  19. TRULICITY [Concomitant]
     Active Substance: DULAGLUTIDE
  20. VENLAFAXINE [Concomitant]
     Active Substance: VENLAFAXINE HYDROCHLORIDE

REACTIONS (2)
  - Sleep disorder [Not Recovered/Not Resolved]
  - Cough [Not Recovered/Not Resolved]
